FAERS Safety Report 16109457 (Version 1)
Quarter: 2019Q1

REPORT INFORMATION
  Report Type: Spontaneous
  Country: FR (occurrence: FR)
  Receive Date: 20190324
  Receipt Date: 20190324
  Transmission Date: 20190418
  Serious: Yes (Hospitalization)
  Sender: FDA-Public Use
  Company Number: FR-ROCHE-2286078

PATIENT
  Age: 19 Year
  Sex: Male

DRUGS (10)
  1. COCAINE [Suspect]
     Active Substance: COCAINE
     Indication: DRUG DEPENDENCE
     Route: 065
     Dates: start: 201901
  2. PREGABALINE [Suspect]
     Active Substance: PREGABALIN
     Indication: POISONING DELIBERATE
     Route: 065
     Dates: start: 20190127, end: 20190127
  3. BROMAZEPAM [Suspect]
     Active Substance: BROMAZEPAM
     Indication: POISONING DELIBERATE
     Route: 065
     Dates: start: 20190127, end: 20190127
  4. TEMAZEPAM. [Suspect]
     Active Substance: TEMAZEPAM
     Indication: POISONING DELIBERATE
     Route: 065
     Dates: start: 20190127, end: 20190127
  5. OXYCODONE [Suspect]
     Active Substance: OXYCODONE
     Indication: POISONING DELIBERATE
     Route: 065
     Dates: start: 20190127, end: 20190127
  6. OXAZEPAM. [Suspect]
     Active Substance: OXAZEPAM
     Indication: POISONING DELIBERATE
     Route: 065
     Dates: start: 20190127, end: 20190127
  7. METHADONE [Suspect]
     Active Substance: METHADONE HYDROCHLORIDE
     Indication: POISONING DELIBERATE
     Route: 065
     Dates: start: 20190127, end: 20190127
  8. DIAZEPAM. [Suspect]
     Active Substance: DIAZEPAM
     Indication: POISONING DELIBERATE
     Route: 065
     Dates: start: 20190127, end: 20190127
  9. LORAZEPAM. [Suspect]
     Active Substance: LORAZEPAM
     Indication: POISONING DELIBERATE
     Route: 065
     Dates: start: 20190127, end: 20190127
  10. ESTAZOLAM. [Suspect]
     Active Substance: ESTAZOLAM
     Indication: POISONING DELIBERATE
     Route: 065
     Dates: start: 20190127, end: 20190127

REACTIONS (1)
  - Poisoning deliberate [Recovered/Resolved]

NARRATIVE: CASE EVENT DATE: 20190127
